FAERS Safety Report 15228660 (Version 1)
Quarter: 2018Q3

REPORT INFORMATION
  Report Type: Spontaneous
  Country: FR (occurrence: FR)
  Receive Date: 20180801
  Receipt Date: 20180801
  Transmission Date: 20181010
  Serious: Yes (Hospitalization)
  Sender: FDA-Public Use
  Company Number: FR-009507513-1807FRA010027

PATIENT
  Age: 84 Year
  Sex: Female
  Weight: 56 kg

DRUGS (12)
  1. LOXEN [Concomitant]
     Dosage: EXTENDED RELEASE CAPSULE
  2. INVANZ [Suspect]
     Active Substance: ERTAPENEM SODIUM
     Indication: ENTEROBACTER SEPSIS
     Route: 042
     Dates: start: 20180612, end: 20180626
  3. SOTALEX [Concomitant]
     Active Substance: SOTALOL
  4. DEROXAT [Concomitant]
     Active Substance: PAROXETINE HYDROCHLORIDE
  5. LOVENOX [Concomitant]
     Active Substance: ENOXAPARIN SODIUM
  6. SKENAN [Concomitant]
     Active Substance: MORPHINE SULFATE
     Dosage: MICROGRANULES PROLONGED RELEASE AS CAPSULE
  7. KARDEGIC [Concomitant]
     Active Substance: ASPIRIN DL-LYSINE
     Dosage: POWDER FOR ORAL SOLUTION IN SACHET
  8. EUPRESSYL [Concomitant]
     Active Substance: URAPIDIL
  9. PRETERAX (INDAPAMIDE (+) PERINDOPRIL ARGININE) [Concomitant]
     Active Substance: INDAPAMIDE\PERINDOPRIL
  10. ACUPAN [Concomitant]
     Active Substance: NEFOPAM HYDROCHLORIDE
  11. DOLIPRANE [Concomitant]
     Active Substance: ACETAMINOPHEN
  12. IMOVANE [Concomitant]
     Active Substance: ZOPICLONE

REACTIONS (3)
  - Confusional state [Recovered/Resolved]
  - Agitation [Recovered/Resolved]
  - Hallucination, visual [Recovered/Resolved]

NARRATIVE: CASE EVENT DATE: 2018
